FAERS Safety Report 10533473 (Version 1)
Quarter: 2014Q4

REPORT INFORMATION
  Report Type: Spontaneous
  Country: US (occurrence: None)
  Receive Date: 20141021
  Receipt Date: 20141021
  Transmission Date: 20150529
  Serious: Yes (Disabling)
  Sender: FDA-Public Use
  Company Number: None

PATIENT
  Age: 66 Year
  Sex: Female
  Weight: 60.78 kg

DRUGS (11)
  1. EXUBERA [Suspect]
     Active Substance: INSULIN HUMAN
     Indication: TYPE 2 DIABETES MELLITUS
     Dosage: 1MG - 3MG BID RESPIRATORY
     Route: 055
  2. METFORMIN HCL [Concomitant]
     Active Substance: METFORMIN HYDROCHLORIDE
  3. MAGNESIUM [Concomitant]
     Active Substance: MAGNESIUM
  4. FISH OIL [Concomitant]
     Active Substance: FISH OIL
  5. PRAVASTATIN SODIUM. [Concomitant]
     Active Substance: PRAVASTATIN SODIUM
  6. MULTIVITAMINS [Concomitant]
     Active Substance: VITAMINS
  7. VAGIFEM [Concomitant]
     Active Substance: ESTRADIOL
  8. ASPIRIN EC LOW STRENGTH [Concomitant]
     Active Substance: ASPIRIN
  9. NATEGLINIDE. [Concomitant]
     Active Substance: NATEGLINIDE
  10. RESTASIS [Concomitant]
     Active Substance: CYCLOSPORINE
  11. VITAMIN C [Concomitant]
     Active Substance: ASCORBIC ACID

REACTIONS (1)
  - Interstitial lung disease [None]

NARRATIVE: CASE EVENT DATE: 20130611
